FAERS Safety Report 9299182 (Version 5)
Quarter: 2013Q3

REPORT INFORMATION
  Report Type: Report from Study
  Country: ES (occurrence: ES)
  Receive Date: 20130520
  Receipt Date: 20130705
  Transmission Date: 20140515
  Serious: Yes (Life-Threatening, Hospitalization)
  Sender: FDA-Public Use
  Company Number: ES-BAXTER-2013BAX017946

PATIENT
  Age: 44 Year
  Sex: Female

DRUGS (6)
  1. GENOXAL 1 G INYECTABLE [Suspect]
     Indication: HER-2 POSITIVE BREAST CANCER
     Route: 042
     Dates: start: 20130320, end: 20130410
  2. GENOXAL 1 G INYECTABLE [Suspect]
     Route: 042
     Dates: start: 20130410, end: 20130429
  3. GENOXAL 1 G INYECTABLE [Suspect]
     Route: 042
     Dates: start: 20130513
  4. DOXORUBICIN [Suspect]
     Indication: HER-2 POSITIVE BREAST CANCER
     Route: 042
     Dates: start: 20130320
  5. DOXORUBICIN [Suspect]
     Route: 042
     Dates: start: 20130410, end: 20130429
  6. DOXORUBICIN [Suspect]
     Route: 042
     Dates: start: 20130513

REACTIONS (2)
  - Infection [Recovered/Resolved]
  - Serratia infection [Recovered/Resolved]
